FAERS Safety Report 7419442-5 (Version None)
Quarter: 2011Q2

REPORT INFORMATION
  Report Type: 
  Country: None (occurrence: None)
  Receive Date: 20110418
  Receipt Date: 20110414
  Transmission Date: 20111010
  Serious: Yes (Life-Threatening, Hospitalization)
  Sender: FDA-Public Use
  Company Number: GB-SP-2011-02209

PATIENT
  Sex: Male

DRUGS (3)
  1. IMMUCYST [Suspect]
     Indication: BLADDER CANCER
     Route: 065
     Dates: start: 20110217, end: 20110310
  2. MITOMYCIN [Concomitant]
     Indication: BLADDER CANCER
     Dosage: ONE DOSE
     Route: 043
     Dates: start: 20110403
  3. ENOXAPARIN [Concomitant]
     Route: 058

REACTIONS (1)
  - BOVINE TUBERCULOSIS [None]
